FAERS Safety Report 22989100 (Version 2)
Quarter: 2023Q4

REPORT INFORMATION
  Report Type: Spontaneous
  Country: AU (occurrence: AU)
  Receive Date: 20230927
  Receipt Date: 20231221
  Transmission Date: 20240109
  Serious: Yes (Hospitalization)
  Sender: FDA-Public Use
  Company Number: AU-BEH-2023163406

PATIENT
  Age: 9 Year
  Sex: Female
  Weight: 28.7 kg

DRUGS (2)
  1. HUMAN IMMUNOGLOBULIN G [Suspect]
     Active Substance: HUMAN IMMUNOGLOBULIN G
     Indication: Selective polysaccharide antibody deficiency
     Dosage: 15 GRAM, QMT
     Route: 042
     Dates: start: 20230904, end: 20230904
  2. HUMAN IMMUNOGLOBULIN G [Suspect]
     Active Substance: HUMAN IMMUNOGLOBULIN G
     Dosage: UNK
     Route: 042
     Dates: start: 20230904, end: 20230904

REACTIONS (6)
  - Chest pain [Recovered/Resolved]
  - Chest pain [Recovered/Resolved]
  - Pleuritic pain [Recovered/Resolved]
  - Headache [Recovered/Resolved]
  - Photophobia [Unknown]
  - Pyrexia [Unknown]

NARRATIVE: CASE EVENT DATE: 20230904
